FAERS Safety Report 25671316 (Version 1)
Quarter: 2025Q3

REPORT INFORMATION
  Report Type: Report from Study
  Country: AU (occurrence: AU)
  Receive Date: 20250812
  Receipt Date: 20250812
  Transmission Date: 20251020
  Serious: Yes (Hospitalization, Other)
  Sender: NOVARTIS
  Company Number: AU-002147023-NVSC2025AU085228

PATIENT
  Age: 73 Year
  Sex: Male

DRUGS (2)
  1. PIQRAY [Suspect]
     Active Substance: ALPELISIB
     Indication: Metastatic salivary gland cancer
     Route: 048
  2. PIQRAY [Suspect]
     Active Substance: ALPELISIB
     Dosage: 250 MG, QD (REDUCED DOSE) (STRENGTH: 200 MG AND 50 MG TABLETS)
     Route: 048

REACTIONS (2)
  - Osteomyelitis [Recovering/Resolving]
  - Hyperglycaemia [Recovered/Resolved]

NARRATIVE: CASE EVENT DATE: 20250801
